FAERS Safety Report 15889328 (Version 1)
Quarter: 2019Q1

REPORT INFORMATION
  Report Type: Spontaneous
  Country: FR (occurrence: FR)
  Receive Date: 20190130
  Receipt Date: 20190130
  Transmission Date: 20190417
  Serious: Yes (Other)
  Sender: FDA-Public Use
  Company Number: FR-SA-2019SA022463

PATIENT
  Age: 26 Year
  Sex: Male

DRUGS (1)
  1. ZOLPIDEM TARTRATE. [Suspect]
     Active Substance: ZOLPIDEM TARTRATE
     Dosage: UNK UNK, UNK
     Route: 065

REACTIONS (5)
  - Chemical submission [Unknown]
  - Facial bones fracture [Unknown]
  - Alcoholic [Unknown]
  - Amnesia [Unknown]
  - Aggression [Unknown]

NARRATIVE: CASE EVENT DATE: 20161118
